FAERS Safety Report 4769499-5 (Version None)
Quarter: 2005Q3

REPORT INFORMATION
  Report Type: 
  Country: None (occurrence: None)
  Receive Date: 20050915
  Receipt Date: 20040921
  Transmission Date: 20060218
  Serious: No
  Sender: FDA-Public Use
  Company Number: US-GLAXOSMITHKLINE-A0526722A

PATIENT
  Age: 25 Year
  Sex: Female

DRUGS (1)
  1. ABREVA [Suspect]
     Dates: start: 20040920, end: 20040920

REACTIONS (4)
  - FEAR [None]
  - HYPERSENSITIVITY [None]
  - SPEECH DISORDER [None]
  - SWELLING FACE [None]
